FAERS Safety Report 8336609-2 (Version None)
Quarter: 2012Q2

REPORT INFORMATION
  Report Type: 
  Country: None (occurrence: None)
  Receive Date: 20120504
  Receipt Date: 20120427
  Transmission Date: 20120825
  Serious: Yes (Hospitalization, Other)
  Sender: FDA-Public Use
  Company Number: US-PFIZER INC-2011122884

PATIENT
  Sex: Male
  Weight: 71.655 kg

DRUGS (9)
  1. VALIUM [Concomitant]
     Dosage: 5 MG, 3X/DAY
  2. FLEXERIL [Concomitant]
     Dosage: 10 MG, 1X/DAY
  3. LORTAB [Concomitant]
     Indication: PAIN
     Dosage: 7.5MG/500MG, 1X/DAY, AS NEEDED
  4. RISPERDAL [Concomitant]
     Dosage: 1 MG, 1X/DAY
  5. PRILOSEC [Concomitant]
     Dosage: 20 MG, 1X/DAY
  6. CHANTIX [Suspect]
     Indication: SMOKING CESSATION THERAPY
     Dosage: 1 MG, 2X/DAY
     Route: 048
     Dates: start: 20110525, end: 20110501
  7. ASPIRIN [Concomitant]
     Dosage: 325 MG, 1X/DAY
  8. EFFEXOR XR [Concomitant]
     Dosage: 75 MG, 1X/DAY
  9. HYDROCHLOROTHIAZIDE [Concomitant]
     Dosage: 1 TABLET, 1X/DAY

REACTIONS (15)
  - APATHY [None]
  - AGITATION [None]
  - ANGER [None]
  - PSYCHIATRIC SYMPTOM [None]
  - TOBACCO USER [None]
  - PHYSICAL ASSAULT [None]
  - SUICIDAL IDEATION [None]
  - DEPRESSION [None]
  - MYOCARDIAL INFARCTION [None]
  - STRESS [None]
  - INCORRECT DOSE ADMINISTERED [None]
  - FEELING ABNORMAL [None]
  - ANXIETY [None]
  - INSOMNIA [None]
  - SKIN PAPILLOMA [None]
